FAERS Safety Report 18467077 (Version 1)
Quarter: 2020Q4

REPORT INFORMATION
  Report Type: Spontaneous
  Country: LT (occurrence: LT)
  Receive Date: 20201105
  Receipt Date: 20201105
  Transmission Date: 20210114
  Serious: Yes (Life-Threatening, Other)
  Sender: FDA-Public Use
  Company Number: LT-GLAXOSMITHKLINE-LT2020219171

PATIENT
  Age: 55 Year
  Sex: Male

DRUGS (5)
  1. SALBUTAMOL [Suspect]
     Active Substance: ALBUTEROL
     Indication: OROPHARYNGEAL PAIN
     Dosage: UNK
     Route: 065
  2. SALBUTAMOL [Suspect]
     Active Substance: ALBUTEROL
     Indication: COUGH
  3. SALBUTAMOL [Suspect]
     Active Substance: ALBUTEROL
     Indication: HYPERSENSITIVITY
  4. SALBUTAMOL [Suspect]
     Active Substance: ALBUTEROL
     Indication: DYSPNOEA
  5. ACETYLSALICYLIC ACID [Suspect]
     Active Substance: ASPIRIN
     Indication: PROPHYLAXIS
     Dosage: 300 MG, QD
     Route: 065

REACTIONS (4)
  - Anaphylactic reaction [Unknown]
  - Hypersensitivity [Unknown]
  - Off label use [Unknown]
  - Bronchospasm [Unknown]
